FAERS Safety Report 4433969-X (Version None)
Quarter: 2004Q3

REPORT INFORMATION
  Report Type: 
  Country: None (occurrence: None)
  Receive Date: 20040825
  Receipt Date: 20040809
  Transmission Date: 20050211
  Serious: Yes (Other)
  Sender: FDA-Public Use
  Company Number: USA040875124

PATIENT
  Age: 74 Year
  Sex: Female

DRUGS (5)
  1. EVISTA [Suspect]
     Indication: OSTEOPOROSIS
     Dosage: UNK
     Route: 065
     Dates: start: 20020101, end: 20040701
  2. CALTRATE (CALCIUM CARBONATE) [Concomitant]
  3. SYNTHROID [Concomitant]
  4. COMPUTERIZED AXIAL TOMOGRAPHY [Concomitant]
  5. MRI, MAGNETIC RESONANCE IMAGING [Concomitant]

REACTIONS (4)
  - BLOOD TRIGLYCERIDES INCREASED [None]
  - DIARRHOEA [None]
  - PARKINSON'S DISEASE [None]
  - THROMBOSIS [None]
